FAERS Safety Report 8178720-5 (Version None)
Quarter: 2012Q1

REPORT INFORMATION
  Report Type: 
  Country: None (occurrence: None)
  Receive Date: 20120301
  Receipt Date: 20120301
  Transmission Date: 20120608
  Serious: Yes (Other)
  Sender: FDA-Public Use
  Company Number: None

PATIENT
  Age: 51 Year
  Sex: Female
  Weight: 110 kg

DRUGS (2)
  1. ELOXATIN [Concomitant]
  2. ELOXATIN [Suspect]
     Indication: COLON CANCER
     Dosage: 190MG
     Route: 041
     Dates: start: 20120131, end: 20120131

REACTIONS (3)
  - NAUSEA [None]
  - INCONTINENCE [None]
  - VOMITING [None]
